FAERS Safety Report 7134842-9 (Version None)
Quarter: 2010Q4

REPORT INFORMATION
  Report Type: 
  Country: None (occurrence: None)
  Receive Date: 20101203
  Receipt Date: 20101126
  Transmission Date: 20110411
  Serious: Yes (Hospitalization)
  Sender: FDA-Public Use
  Company Number: JP-ROCHE-745644

PATIENT
  Age: 19 Year
  Sex: Male

DRUGS (8)
  1. VALGANCICLOVIR [Suspect]
     Indication: CYTOMEGALOVIRUS INFECTION
     Route: 048
     Dates: start: 20100221, end: 20100302
  2. PROGRAF [Concomitant]
     Dates: start: 20100108
  3. ZOVIRAX [Concomitant]
     Dates: start: 20100111
  4. URSO 250 [Concomitant]
     Dates: start: 20100119
  5. PREDNISOLONE [Concomitant]
     Dates: start: 20100122
  6. DIFLUCAN [Concomitant]
     Dates: start: 20100124
  7. BAKTAR [Concomitant]
     Route: 065
     Dates: start: 20100203
  8. LANSOPRAZOLE [Concomitant]
     Dates: start: 20091207

REACTIONS (2)
  - CYSTITIS HAEMORRHAGIC [None]
  - PANCYTOPENIA [None]
